FAERS Safety Report 25019793 (Version 1)
Quarter: 2025Q1

REPORT INFORMATION
  Report Type: Spontaneous
  Country: US (occurrence: US)
  Receive Date: 20250227
  Receipt Date: 20250227
  Transmission Date: 20250408
  Serious: No
  Sender: UCB
  Company Number: US-UCBSA-2024024800

PATIENT
  Age: 53 Year
  Sex: Female

DRUGS (2)
  1. KEPPRA XR [Suspect]
     Active Substance: LEVETIRACETAM
     Indication: Product used for unknown indication
     Dosage: 500 MILLIGRAM, 3X/DAY (TID)
  2. KEPPRA XR [Suspect]
     Active Substance: LEVETIRACETAM
     Dosage: 500 MILLIGRAM, 3X/DAY (TID)
     Dates: start: 20240514

REACTIONS (4)
  - Malaise [Not Recovered/Not Resolved]
  - Aura [Not Recovered/Not Resolved]
  - Product complaint [Unknown]
  - Product use issue [Unknown]

NARRATIVE: CASE EVENT DATE: 20240514
